FAERS Safety Report 25935925 (Version 1)
Quarter: 2025Q4

REPORT INFORMATION
  Report Type: Spontaneous
  Country: US (occurrence: None)
  Receive Date: 20251017
  Receipt Date: 20251017
  Transmission Date: 20260118
  Serious: No
  Sender: FDA-CTU
  Company Number: None

PATIENT
  Sex: Male

DRUGS (1)
  1. BCG LIVE [Suspect]
     Active Substance: BCG LIVE
     Indication: Bladder cancer

REACTIONS (5)
  - Bacillus Calmette-Guerin infection [None]
  - Cardiac valve abscess [None]
  - Product availability issue [None]
  - Extra dose administered [None]
  - Product quality issue [None]
